FAERS Safety Report 13972971 (Version 1)
Quarter: 2017Q3

REPORT INFORMATION
  Report Type: Spontaneous
  Country: SE (occurrence: SE)
  Receive Date: 20170915
  Receipt Date: 20170915
  Transmission Date: 20171128
  Serious: Yes (Life-Threatening, Hospitalization, Other)
  Sender: FDA-Public Use
  Company Number: SE-GLAXOSMITHKLINE-SE2017142293

PATIENT
  Age: 34 Year
  Sex: Female

DRUGS (5)
  1. SCOPODERM TTS [Suspect]
     Active Substance: SCOPOLAMINE
     Indication: NAUSEA
     Dosage: UNK
     Dates: start: 20170418, end: 20170420
  2. PAPAVERINE [Concomitant]
     Active Substance: PAPAVERINE
     Indication: PRODUCT USED FOR UNKNOWN INDICATION
     Dosage: UNK
  3. ZOFRAN [Concomitant]
     Active Substance: ONDANSETRON HYDROCHLORIDE
     Indication: PRODUCT USED FOR UNKNOWN INDICATION
     Dosage: 8 MG
     Route: 065
  4. LEVAXIN [Concomitant]
     Active Substance: LEVOTHYROXINE SODIUM
     Indication: PRODUCT USED FOR UNKNOWN INDICATION
     Dosage: UNK
     Route: 065
  5. SOBRIL [Concomitant]
     Active Substance: OXAZEPAM
     Indication: PRODUCT USED FOR UNKNOWN INDICATION
     Dosage: 5 MG
     Route: 065

REACTIONS (16)
  - Nightmare [Recovered/Resolved with Sequelae]
  - Balance disorder [Recovered/Resolved with Sequelae]
  - Mydriasis [Recovered/Resolved with Sequelae]
  - Parosmia [Recovered/Resolved with Sequelae]
  - Arthralgia [Recovered/Resolved with Sequelae]
  - Confusional state [Unknown]
  - Trismus [Recovered/Resolved with Sequelae]
  - Photophobia [Recovered/Resolved with Sequelae]
  - Myalgia [Recovered/Resolved with Sequelae]
  - Hallucination [Recovered/Resolved with Sequelae]
  - Withdrawal syndrome [Recovered/Resolved with Sequelae]
  - Fatigue [Recovered/Resolved with Sequelae]
  - Hyperacusis [Recovered/Resolved with Sequelae]
  - Panic attack [Recovered/Resolved with Sequelae]
  - Altered state of consciousness [Recovered/Resolved with Sequelae]
  - Dizziness [Unknown]

NARRATIVE: CASE EVENT DATE: 20170420
